FAERS Safety Report 13571796 (Version 1)
Quarter: 2017Q2

REPORT INFORMATION
  Report Type: Spontaneous
  Country: US (occurrence: US)
  Receive Date: 20170523
  Receipt Date: 20170523
  Transmission Date: 20170830
  Serious: Yes (Other)
  Sender: FDA-Public Use
  Company Number: US-AMGEN-USASP2017075413

PATIENT
  Age: 71 Year
  Sex: Female
  Weight: 69.4 kg

DRUGS (3)
  1. XGEVA [Suspect]
     Active Substance: DENOSUMAB
     Indication: PRODUCT USED FOR UNKNOWN INDICATION
     Dosage: UNK
     Route: 065
  2. ZOMETA [Concomitant]
     Active Substance: ZOLEDRONIC ACID
     Dosage: UNK
  3. FASLODEX [Concomitant]
     Active Substance: FULVESTRANT

REACTIONS (2)
  - Breast cancer [Not Recovered/Not Resolved]
  - Metastases to bone [Unknown]

NARRATIVE: CASE EVENT DATE: 2015
